FAERS Safety Report 10205622 (Version 2)
Quarter: 2014Q2

REPORT INFORMATION
  Report Type: Spontaneous
  Country: US (occurrence: US)
  Receive Date: 20140529
  Receipt Date: 20140529
  Transmission Date: 20141212
  Serious: Yes (Other)
  Sender: FDA-Public Use
  Company Number: US-RB-066776-14

PATIENT
  Age: 43 Year
  Sex: Female

DRUGS (2)
  1. SUBOXONE FILM [Suspect]
     Indication: PRODUCT USED FOR UNKNOWN INDICATION
     Dosage: SUBOXONE FILM; DOSING DETAILS UNKNOWN
     Route: 065
  2. SUBOXONE TABLET [Suspect]
     Indication: PRODUCT USED FOR UNKNOWN INDICATION
     Dosage: DOSING DETAILS UNKNOWN
     Route: 065

REACTIONS (6)
  - Hallucination [Recovered/Resolved]
  - Cardiac disorder [Recovered/Resolved]
  - Mania [Recovered/Resolved]
  - Nervous system disorder [Not Recovered/Not Resolved]
  - Hypersensitivity [Recovered/Resolved]
  - Blood pressure abnormal [Recovered/Resolved]
